FAERS Safety Report 7033274-1 (Version None)
Quarter: 2010Q4

REPORT INFORMATION
  Report Type: 
  Country: None (occurrence: None)
  Receive Date: 20101007
  Receipt Date: 20101001
  Transmission Date: 20110411
  Serious: Yes (Other)
  Sender: FDA-Public Use
  Company Number: A0884488A

PATIENT
  Age: 56 Year
  Sex: Male

DRUGS (4)
  1. ADVAIR DISKUS 100/50 [Suspect]
     Indication: ASTHMA
     Dosage: 1PUFF PER DAY
     Route: 055
     Dates: start: 20070101
  2. NAPROSYN [Concomitant]
  3. LISINOPRIL [Concomitant]
  4. CLARITIN-D [Concomitant]

REACTIONS (1)
  - ASTHMA [None]
